FAERS Safety Report 5727613-9 (Version None)
Quarter: 2008Q2

REPORT INFORMATION
  Report Type: 
  Country: None (occurrence: None)
  Receive Date: 20080505
  Receipt Date: 20080422
  Transmission Date: 20081010
  Serious: Yes (Other)
  Sender: FDA-Public Use
  Company Number: SE-GENENTECH-260289

PATIENT
  Sex: Female

DRUGS (3)
  1. AVASTIN [Suspect]
     Indication: BREAST CANCER
  2. TAXOL [Suspect]
     Indication: BREAST CANCER
  3. ANTHRACYCLINE NOS [Concomitant]
     Indication: DRUG USE FOR UNKNOWN INDICATION

REACTIONS (1)
  - CARDIOMYOPATHY [None]
